FAERS Safety Report 5879447-2 (Version None)
Quarter: 2008Q3

REPORT INFORMATION
  Report Type: 
  Country: None (occurrence: None)
  Receive Date: 20080912
  Receipt Date: 20080911
  Transmission Date: 20090109
  Serious: Yes (Hospitalization)
  Sender: FDA-Public Use
  Company Number: B0536843A

PATIENT
  Sex: Female

DRUGS (5)
  1. DILATREND [Suspect]
     Indication: CARDIOMYOPATHY
     Dosage: 25MG TWICE PER DAY
     Route: 065
     Dates: start: 20080301
  2. FUROSEMIDE [Concomitant]
  3. ASPIRIN [Concomitant]
  4. ATORVASTATIN [Concomitant]
  5. PERINDOPRIL ERBUMINE [Concomitant]

REACTIONS (5)
  - DIZZINESS [None]
  - FATIGUE [None]
  - MUSCULOSKELETAL PAIN [None]
  - PAIN IN JAW [None]
  - SOMNOLENCE [None]
